FAERS Safety Report 14495923 (Version 1)
Quarter: 2018Q1

REPORT INFORMATION
  Report Type: Spontaneous
  Country: FR (occurrence: FR)
  Receive Date: 20180207
  Receipt Date: 20180207
  Transmission Date: 20180509
  Serious: Yes (Other)
  Sender: FDA-Public Use
  Company Number: FR-ROCHE-2068868

PATIENT
  Age: 73 Year
  Sex: Male
  Weight: 60 kg

DRUGS (20)
  1. PHOSPHONEUROS [Concomitant]
     Active Substance: CALCIUM PHOSPHATE, DIBASIC, ANHYDROUS\MAGNESIUM GLYCEROPHOSPHATE\PHOSPHORIC ACID\SODIUM PHOSPHATE, DIBASIC
     Route: 065
  2. TARDYFERON (FRANCE) [Concomitant]
     Active Substance: FERROUS SULFATE\GASTRIC MUCIN
     Route: 065
  3. INNOHEP [Concomitant]
     Active Substance: TINZAPARIN SODIUM
     Route: 065
  4. CREON [Concomitant]
     Active Substance: PANCRELIPASE AMYLASE\PANCRELIPASE LIPASE\PANCRELIPASE PROTEASE
     Route: 065
  5. GEMCITABINE [Suspect]
     Active Substance: GEMCITABINE\GEMCITABINE HYDROCHLORIDE
     Indication: ADRENAL GLAND CANCER METASTATIC
     Route: 042
     Dates: start: 20171113, end: 20171220
  6. INEXIUM [Concomitant]
     Active Substance: ESOMEPRAZOLE
     Route: 065
  7. IMOVANE [Concomitant]
     Active Substance: ZOPICLONE
     Route: 065
  8. LYSODREN [Concomitant]
     Active Substance: MITOTANE
     Route: 065
  9. METOPIRONE [Concomitant]
     Active Substance: METYRAPONE
     Route: 065
  10. XELODA [Suspect]
     Active Substance: CAPECITABINE
     Indication: ADRENAL GLAND CANCER METASTATIC
     Route: 048
     Dates: start: 20171113, end: 20171220
  11. SERESTA [Concomitant]
     Active Substance: OXAZEPAM
     Route: 065
  12. ARANESP [Concomitant]
     Active Substance: DARBEPOETIN ALFA
     Route: 065
  13. ESCITALOPRAM [Concomitant]
     Active Substance: ESCITALOPRAM OXALATE
     Route: 065
  14. CACIT (FRANCE) [Concomitant]
     Route: 065
  15. PRIMPERAN [Concomitant]
     Active Substance: METOCLOPRAMIDE HYDROCHLORIDE
     Route: 065
  16. ZOPHREN [Concomitant]
     Active Substance: ONDANSETRON
     Route: 065
  17. HYDROCORTISONE. [Concomitant]
     Active Substance: HYDROCORTISONE
     Route: 065
  18. SPIRONOLACTONE. [Concomitant]
     Active Substance: SPIRONOLACTONE
     Route: 065
  19. EUPRESSYL [Concomitant]
     Active Substance: URAPIDIL
     Route: 065
  20. DIFFU K [Concomitant]
     Active Substance: POTASSIUM CHLORIDE
     Route: 065

REACTIONS (1)
  - Bicytopenia [Recovering/Resolving]

NARRATIVE: CASE EVENT DATE: 20171217
